FAERS Safety Report 25363734 (Version 1)
Quarter: 2025Q2

REPORT INFORMATION
  Report Type: Spontaneous
  Country: DE (occurrence: DE)
  Receive Date: 20250527
  Receipt Date: 20250527
  Transmission Date: 20250716
  Serious: Yes (Other)
  Sender: NOVARTIS
  Company Number: DE-UCBSA-2025028821

PATIENT
  Sex: Male

DRUGS (6)
  1. OXCARBAZEPINE [Suspect]
     Active Substance: OXCARBAZEPINE
     Indication: Epilepsy
     Route: 065
     Dates: start: 202404
  2. LACOSAMIDE [Suspect]
     Active Substance: LACOSAMIDE
     Indication: Epilepsy
     Route: 065
  3. LACOSAMIDE [Suspect]
     Active Substance: LACOSAMIDE
     Route: 065
     Dates: start: 202404
  4. LACOSAMIDE [Suspect]
     Active Substance: LACOSAMIDE
     Dosage: 500 MG, QD (500 MILLIGRAM, QD, ONCE DAILY (QD))
     Route: 065
     Dates: start: 202409
  5. LACOSAMIDE [Suspect]
     Active Substance: LACOSAMIDE
     Dosage: 400 MG, QD (400 MILLIGRAM, QD, ONCE DAILY (QD))
     Route: 065
  6. BRIVIACT [Suspect]
     Active Substance: BRIVARACETAM
     Indication: Epilepsy
     Dosage: 200 MG, QD (200 MG, QD,  ONCE DAILY (QD))
     Route: 065
     Dates: start: 202404

REACTIONS (4)
  - Polyneuropathy [Unknown]
  - Weight decreased [Unknown]
  - Tremor [Unknown]
  - Off label use [Unknown]

NARRATIVE: CASE EVENT DATE: 20240901
